FAERS Safety Report 11306650 (Version 1)
Quarter: 2015Q3

REPORT INFORMATION
  Report Type: Spontaneous
  Country: GB (occurrence: GB)
  Receive Date: 20150723
  Receipt Date: 20150723
  Transmission Date: 20151125
  Serious: Yes (Hospitalization, Other)
  Sender: FDA-Public Use
  Company Number: PHHY2015GB084530

PATIENT
  Age: 47 Year
  Sex: Female
  Weight: 86 kg

DRUGS (1)
  1. OMEPRAZOLE. [Suspect]
     Active Substance: OMEPRAZOLE
     Indication: GASTROOESOPHAGEAL REFLUX DISEASE
     Dosage: 20MG
     Route: 048
     Dates: start: 2011, end: 20140310

REACTIONS (3)
  - Tubulointerstitial nephritis [Recovered/Resolved with Sequelae]
  - Chronic kidney disease [Unknown]
  - Lethargy [Unknown]

NARRATIVE: CASE EVENT DATE: 20140221
